FAERS Safety Report 10227956 (Version 1)
Quarter: 2014Q2

REPORT INFORMATION
  Report Type: Spontaneous
  Country: US (occurrence: US)
  Receive Date: 20140610
  Receipt Date: 20140610
  Transmission Date: 20141212
  Serious: No
  Sender: FDA-Public Use
  Company Number: US-TEVA-486364USA

PATIENT
  Age: 61 Year
  Sex: Female
  Weight: 86.26 kg

DRUGS (6)
  1. NUVIGIL [Suspect]
     Indication: SOMNOLENCE
     Route: 048
     Dates: start: 20140530
  2. NUVIGIL [Suspect]
     Indication: SLEEP APNOEA SYNDROME
  3. ASPIRIN [Concomitant]
     Indication: PAIN
  4. CYMBALTA [Concomitant]
     Indication: DEPRESSION
  5. ACYCLOVIR [Concomitant]
     Indication: INFECTION
  6. LEVOTHYROXINE [Concomitant]
     Indication: HYPOTHYROIDISM

REACTIONS (1)
  - Epistaxis [Not Recovered/Not Resolved]
